FAERS Safety Report 6708375-5 (Version None)
Quarter: 2010Q2

REPORT INFORMATION
  Report Type: 
  Country: None (occurrence: None)
  Receive Date: 20100503
  Receipt Date: 20090714
  Transmission Date: 20101027
  Serious: No
  Sender: FDA-Public Use
  Company Number: US-ASTRAZENECA-2009UW19764

PATIENT
  Age: 26 Year
  Sex: Male
  Weight: 81.2 kg

DRUGS (3)
  1. NEXIUM [Suspect]
     Indication: GASTROOESOPHAGEAL REFLUX DISEASE
     Route: 048
     Dates: start: 20090708, end: 20090720
  2. SINGULAIR [Concomitant]
  3. CLARINEX [Concomitant]

REACTIONS (7)
  - COUGH [None]
  - DIZZINESS [None]
  - DRY MOUTH [None]
  - DYSPNOEA [None]
  - FLATULENCE [None]
  - GLOSSODYNIA [None]
  - SOMNOLENCE [None]
